FAERS Safety Report 6534320-1 (Version None)
Quarter: 2010Q1

REPORT INFORMATION
  Report Type: 
  Country: None (occurrence: None)
  Receive Date: 20100112
  Receipt Date: 20091211
  Transmission Date: 20100710
  Serious: No
  Sender: FDA-Public Use
  Company Number: US-BAYER-200942571NA

PATIENT
  Age: 34 Year
  Sex: Female
  Weight: 50 kg

DRUGS (1)
  1. YASMIN [Suspect]
     Indication: MENSTRUATION IRREGULAR
     Route: 048
     Dates: start: 20040101

REACTIONS (1)
  - BLOOD ALDOSTERONE INCREASED [None]
